FAERS Safety Report 4333859-7 (Version None)
Quarter: 2004Q2

REPORT INFORMATION
  Report Type: 
  Country: None (occurrence: None)
  Receive Date: 20040402
  Receipt Date: 20040318
  Transmission Date: 20050107
  Serious: Yes (Hospitalization, Other)
  Sender: FDA-Public Use
  Company Number: 04-088-0818

PATIENT
  Age: 58 Year
  Sex: Male
  Weight: 80.7403 kg

DRUGS (8)
  1. PACLITAXEL [Suspect]
     Indication: NON-SMALL CELL LUNG CANCER STAGE IV
     Dosage: ONE DOSE
     Dates: start: 20040311
  2. HYDROCHLOROTHIAZIDE [Concomitant]
  3. METOPROLOL [Concomitant]
  4. CELEXA [Concomitant]
  5. ZYPREXA [Concomitant]
  6. MESTINON [Concomitant]
  7. POTASSIUM CHLORIDE SUPPLEMENT [Concomitant]
  8. MEGACE [Concomitant]

REACTIONS (2)
  - CELLULITIS [None]
  - INFUSION SITE REACTION [None]
